FAERS Safety Report 22139157 (Version 1)
Quarter: 2023Q1

REPORT INFORMATION
  Report Type: Spontaneous
  Country: US (occurrence: US)
  Receive Date: 20230327
  Receipt Date: 20230327
  Transmission Date: 20230417
  Serious: No
  Sender: FDA-Public Use
  Company Number: US-ELI_LILLY_AND_COMPANY-US202303011042

PATIENT
  Sex: Male

DRUGS (2)
  1. HUMALOG [Suspect]
     Active Substance: INSULIN LISPRO
     Indication: Type 2 diabetes mellitus
     Dosage: UNK UNK, UNKNOWN
  2. LEVEMIR [Concomitant]
     Active Substance: INSULIN DETEMIR
     Indication: Product used for unknown indication
     Dosage: 20 U, EACH MORNING

REACTIONS (5)
  - Sinusitis [Recovering/Resolving]
  - Nasopharyngitis [Unknown]
  - Blood glucose increased [Recovering/Resolving]
  - Therapeutic product effect decreased [Unknown]
  - Extra dose administered [Unknown]
